FAERS Safety Report 9752717 (Version 1)
Quarter: 2013Q4

REPORT INFORMATION
  Report Type: Spontaneous
  Country: US (occurrence: None)
  Receive Date: 20131212
  Receipt Date: 20131212
  Transmission Date: 20140711
  Serious: No
  Sender: FDA-Public Use
  Company Number: None

PATIENT
  Sex: 0

DRUGS (1)
  1. RISPERDAL [Suspect]

REACTIONS (6)
  - Abnormal dreams [None]
  - Gait disturbance [None]
  - Paranoia [None]
  - Anxiety [None]
  - Urinary incontinence [None]
  - Product quality issue [None]
